FAERS Safety Report 20141182 (Version 1)
Quarter: 2021Q4

REPORT INFORMATION
  Report Type: Spontaneous
  Country: US (occurrence: None)
  Receive Date: 20211201
  Receipt Date: 20211201
  Transmission Date: 20220303
  Serious: No
  Sender: FDA-Public Use
  Company Number: None

PATIENT

DRUGS (2)
  1. ETOPOSIDE [Suspect]
     Active Substance: ETOPOSIDE
     Route: 042
  2. ETOPOSIDE [Suspect]
     Active Substance: ETOPOSIDE
     Route: 042

REACTIONS (6)
  - Incorrect dose administered [None]
  - Meningitis chemical [None]
  - Product prescribing error [None]
  - Product preparation error [None]
  - Wrong route [None]
  - Drug monitoring procedure not performed [None]
